FAERS Safety Report 24693727 (Version 2)
Quarter: 2024Q4

REPORT INFORMATION
  Report Type: Report from Study
  Country: US (occurrence: US)
  Receive Date: 20241204
  Receipt Date: 20241224
  Transmission Date: 20250115
  Serious: Yes (Other)
  Sender: ABBVIE
  Company Number: US-ABBVIE-6029691

PATIENT
  Age: 57 Year
  Sex: Male
  Weight: 142.88 kg

DRUGS (3)
  1. SKYRIZI [Suspect]
     Active Substance: RISANKIZUMAB-RZAA
     Indication: Psoriasis
     Route: 058
     Dates: start: 20221201, end: 202409
  2. SKYRIZI [Suspect]
     Active Substance: RISANKIZUMAB-RZAA
     Dosage: FIRST ADMIN DATE:2024
     Route: 058
  3. TRAMADOL [Concomitant]
     Active Substance: TRAMADOL
     Indication: Pain

REACTIONS (3)
  - Knee arthroplasty [Recovering/Resolving]
  - Back disorder [Unknown]
  - Arthritis [Unknown]

NARRATIVE: CASE EVENT DATE: 20240101
